FAERS Safety Report 17479925 (Version 1)
Quarter: 2020Q1

REPORT INFORMATION
  Report Type: Spontaneous
  Country: FR (occurrence: FR)
  Receive Date: 20200228
  Receipt Date: 20200228
  Transmission Date: 20200409
  Serious: Yes (Life-Threatening)
  Sender: FDA-Public Use
  Company Number: FR-ANIPHARMA-2020-FR-000064

PATIENT
  Age: 76 Year
  Sex: Male
  Weight: 66 kg

DRUGS (5)
  1. CANDESARTAN CILEXETIL AND HYDROCHLOROTHIAZIDE [Suspect]
     Active Substance: CANDESARTAN CILEXETIL\HYDROCHLOROTHIAZIDE
     Indication: HYPERTENSION
     Dosage: 1 DF QD
     Route: 048
     Dates: end: 20191221
  2. BISOPROLOL HEMIFUMARATE [Concomitant]
     Active Substance: BISOPROLOL FUMARATE
     Dosage: UNK
     Route: 065
  3. AMLOR [Suspect]
     Active Substance: AMLODIPINE BESYLATE
     Dosage: 5 MG QD
     Route: 048
     Dates: end: 20191221
  4. ELIQUIS [Suspect]
     Active Substance: APIXABAN
     Dosage: 1.25 MG QD
     Route: 048
     Dates: end: 20191221
  5. CORDARONE [Suspect]
     Active Substance: AMIODARONE HYDROCHLORIDE
     Dosage: 200 MG QD
     Route: 048
     Dates: end: 20200103

REACTIONS (2)
  - Respiratory distress [Unknown]
  - Interstitial lung disease [Unknown]

NARRATIVE: CASE EVENT DATE: 20191216
